FAERS Safety Report 7890662-9 (Version None)
Quarter: 2011Q4

REPORT INFORMATION
  Report Type: 
  Country: None (occurrence: None)
  Receive Date: 20111103
  Receipt Date: 20110722
  Transmission Date: 20120403
  Serious: No
  Sender: FDA-Public Use
  Company Number: US-AMGEN-USASP2011037492

PATIENT
  Age: 49 Year
  Sex: Male

DRUGS (3)
  1. MULTI-VITAMIN [Concomitant]
     Dosage: UNK
     Route: 048
  2. PANTOPRAZOLE [Concomitant]
     Dosage: 20 MG, UNK
     Route: 048
  3. ENBREL [Suspect]
     Indication: PSORIASIS
     Dosage: 50 MG, QWK
     Route: 058
     Dates: start: 20110707

REACTIONS (3)
  - GASTROINTESTINAL PAIN [None]
  - EPISTAXIS [None]
  - BLOOD URINE PRESENT [None]
